FAERS Safety Report 12481895 (Version 1)
Quarter: 2016Q2

REPORT INFORMATION
  Report Type: Spontaneous
  Country: US (occurrence: US)
  Receive Date: 20160620
  Receipt Date: 20160620
  Transmission Date: 20160815
  Serious: No
  Sender: FDA-Public Use
  Company Number: US-MEDA-2016060034

PATIENT
  Sex: Female

DRUGS (1)
  1. AEROSPAN [Suspect]
     Active Substance: FLUNISOLIDE
     Indication: ASTHMA
     Dates: start: 201605, end: 2016

REACTIONS (2)
  - Oropharyngeal pain [Unknown]
  - Cough [Unknown]

NARRATIVE: CASE EVENT DATE: 201605
